FAERS Safety Report 4805795-0 (Version None)
Quarter: 2005Q4

REPORT INFORMATION
  Report Type: 
  Country: None (occurrence: None)
  Receive Date: 20051021
  Receipt Date: 20051010
  Transmission Date: 20060501
  Serious: Yes (Hospitalization)
  Sender: FDA-Public Use
  Company Number: US-GILEAD-2005-0008797

PATIENT
  Sex: Male
  Weight: 73.5 kg

DRUGS (6)
  1. EMTRICITABINE [Suspect]
     Indication: HIV INFECTION
     Dates: start: 20040713, end: 20050614
  2. TENOFOVIR DF [Suspect]
     Indication: HIV INFECTION
     Dates: start: 20040713, end: 20050614
  3. LOPINAVIR/RITONAVIR [Suspect]
     Indication: HIV INFECTION
     Dates: start: 20040713, end: 20050614
  4. ATENOLOL [Concomitant]
     Dates: start: 20020505
  5. DAPSONE [Concomitant]
     Dates: start: 20040722
  6. HYDROCHLOROTHIAZIDE [Concomitant]
     Dates: start: 20050701

REACTIONS (8)
  - BIFASCICULAR BLOCK [None]
  - BUNDLE BRANCH BLOCK RIGHT [None]
  - CARDIAC ARREST [None]
  - CEREBRAL INFARCTION [None]
  - CORONARY ARTERY STENOSIS [None]
  - GRAND MAL CONVULSION [None]
  - MYOCARDIAL INFARCTION [None]
  - VENTRICULAR FIBRILLATION [None]
